FAERS Safety Report 8524518-5 (Version None)
Quarter: 2012Q3

REPORT INFORMATION
  Report Type: 
  Country: None (occurrence: None)
  Receive Date: 20120716
  Receipt Date: 20120716
  Transmission Date: 20120928
  Serious: Yes (Hospitalization)
  Sender: FDA-Public Use
  Company Number: None

PATIENT
  Sex: Female
  Weight: 100.9 kg

DRUGS (3)
  1. PACLITAXEL [Suspect]
     Dosage: 270 MG
  2. G-CSF (FILGRASTIM, AMGEN) [Suspect]
     Dosage: 6 MG
  3. IFOSFAMIDE [Suspect]
     Dosage: 6600 MG

REACTIONS (12)
  - MYALGIA [None]
  - OROPHARYNGEAL PAIN [None]
  - IMPAIRED HEALING [None]
  - DYSPNOEA EXERTIONAL [None]
  - ACTIVITIES OF DAILY LIVING IMPAIRED [None]
  - WHEEZING [None]
  - BLOOD PRESSURE INCREASED [None]
  - PRODUCTIVE COUGH [None]
  - PYREXIA [None]
  - FATIGUE [None]
  - RESPIRATORY TRACT CONGESTION [None]
  - CYSTITIS KLEBSIELLA [None]
